FAERS Safety Report 6583451-9 (Version None)
Quarter: 2010Q1

REPORT INFORMATION
  Report Type: 
  Country: None (occurrence: None)
  Receive Date: 20100216
  Receipt Date: 20100209
  Transmission Date: 20100710
  Serious: Yes (Hospitalization)
  Sender: FDA-Public Use
  Company Number: US-BAYER-201012858NA

PATIENT
  Age: 51 Year
  Sex: Female
  Weight: 112 kg

DRUGS (1)
  1. ULTRAVIST 370 [Suspect]
     Indication: ANGIOGRAM
     Dosage: TOTAL DAILY DOSE: 100 ML  UNIT DOSE: 100 ML
     Route: 042
     Dates: start: 20100131, end: 20100131

REACTIONS (4)
  - COUGH [None]
  - PHARYNGEAL OEDEMA [None]
  - SWELLING FACE [None]
  - THROAT IRRITATION [None]
